FAERS Safety Report 8952867 (Version 1)
Quarter: 2012Q4

REPORT INFORMATION
  Report Type: 
  Country: GB (occurrence: GB)
  Receive Date: 20121203
  Receipt Date: 20121203
  Transmission Date: 20130627
  Serious: Yes (Other)
  Sender: FDA-Public Use
  Company Number: GB-009507513-1211GBR011830

PATIENT
  Age: 55 Year
  Sex: Male
  Weight: 169.9 kg

DRUGS (4)
  1. SIMVASTATIN [Suspect]
     Dosage: 40 mg, UNK
     Route: 048
     Dates: start: 201208, end: 201210
  2. AMLODIPINE [Concomitant]
     Dosage: 5 mg, UNK
     Dates: start: 201206
  3. BENDROFLUMETHIAZIDE [Concomitant]
     Dosage: 2.5 mg, UNK
     Dates: start: 200804
  4. CANDESARTAN [Concomitant]
     Dosage: 32 mg, UNK
     Dates: start: 200803, end: 201210

REACTIONS (2)
  - Renal failure acute [Recovered/Resolved]
  - Hypertension [Unknown]
